FAERS Safety Report 7869918-1 (Version None)
Quarter: 2011Q4

REPORT INFORMATION
  Report Type: 
  Country: None (occurrence: None)
  Receive Date: 20111027
  Receipt Date: 20111018
  Transmission Date: 20120403
  Serious: Yes (Hospitalization)
  Sender: FDA-Public Use
  Company Number: 2011HGS-002616

PATIENT
  Age: 58 Year
  Sex: Female

DRUGS (13)
  1. FUROSEMIDE [Concomitant]
  2. NTG (GLYCERYL TRINITRATE) (GLYCERYL TRINITRATE) [Concomitant]
  3. BONIVA (IBANDRONATE SODIUM) (IBANDRONATE SODIUM) [Concomitant]
  4. KLOR-CON (POTASSIUM CHLORIDE) (POTASSIUM CHLORIDE) [Concomitant]
  5. VIACTIV (CALCIUM) (CALCIUM) [Concomitant]
  6. MVI (MVI) (VITAMINS NOS) [Concomitant]
  7. PERCOCET (OXYCOCET) (PARACETAMOL, OXYCODONE HYDROCHLORIDE) [Concomitant]
  8. ACIPHEX (RABEPRAZOLE SODIUM) (RABEPRAZOLE SODIUM) [Concomitant]
  9. LEVOTHYROXINE SODIUM [Concomitant]
  10. BENLYSTA [Suspect]
     Indication: SYSTEMIC LUPUS ERYTHEMATOSUS
     Dosage: 10 MG/KG, 1 IN 16 D, INTRAVENOUS
     Route: 042
     Dates: start: 20110818, end: 20110818
  11. AZATHIOPRINE (AZATHIOPRINE) (AZATHIOPRINE) [Concomitant]
  12. DIGOXIN [Concomitant]
  13. SOTALOL (SOTALOL) (SOTALOL) [Concomitant]

REACTIONS (6)
  - VOMITING [None]
  - NAUSEA [None]
  - CHEST PAIN [None]
  - ARTHRALGIA [None]
  - HEADACHE [None]
  - DIARRHOEA [None]
